FAERS Safety Report 7852069-X (Version None)
Quarter: 2011Q3

REPORT INFORMATION
  Report Type: 
  Country: None (occurrence: None)
  Receive Date: 20110906
  Receipt Date: 20110621
  Transmission Date: 20111222
  Serious: No
  Sender: FDA-Public Use
  Company Number: 201106018

PATIENT
  Age: 76 Year
  Sex: Male

DRUGS (8)
  1. COREG [Concomitant]
  2. GLYBURIDE [Concomitant]
  3. SIMVASTATIN [Concomitant]
  4. ACTOS [Concomitant]
  5. HYDROCHLOROTHIAZIDE [Concomitant]
  6. INSULIN (INSULIN) [Concomitant]
  7. XIAFLEX [Suspect]
     Indication: DUPUYTREN'S CONTRACTURE
     Dosage: 1 IN 1 D, INTRALESIONAL
     Route: 026
     Dates: start: 20110606, end: 20110606
  8. ASPIRIN TAB [Concomitant]

REACTIONS (2)
  - INJECTION SITE HAEMATOMA [None]
  - OEDEMA PERIPHERAL [None]
